FAERS Safety Report 5383517-5 (Version None)
Quarter: 2007Q3

REPORT INFORMATION
  Report Type: 
  Country: None (occurrence: None)
  Receive Date: 20070706
  Receipt Date: 20070627
  Transmission Date: 20080115
  Serious: Yes (Death)
  Sender: FDA-Public Use
  Company Number: 2007AL002597

PATIENT
  Age: 36 Year
  Sex: Female

DRUGS (7)
  1. FLUOXETINE [Suspect]
     Dosage: 40 MG; QD; UNK
  2. PAROXETINE [Concomitant]
  3. CLOZARIL [Concomitant]
  4. LITHIUM CARBONATE [Concomitant]
  5. ZOPICLONE [Concomitant]
  6. OMEPRAZOLE [Concomitant]
  7. LEVOTHYROXINE SODIUM [Concomitant]

REACTIONS (1)
  - SUDDEN DEATH [None]
